FAERS Safety Report 10649656 (Version 2)
Quarter: 2014Q4

REPORT INFORMATION
  Report Type: Spontaneous
  Country: JP (occurrence: JP)
  Receive Date: 20141212
  Receipt Date: 20141230
  Transmission Date: 20150529
  Serious: Yes (Other)
  Sender: FDA-Public Use
  Company Number: JP-B.I. PHARMACEUTICALS,INC./RIDGEFIELD-2014-BI-59978GD

PATIENT
  Age: 68 Year
  Sex: Female

DRUGS (2)
  1. MOBIC [Suspect]
     Active Substance: MELOXICAM
     Indication: SPINAL COMPRESSION FRACTURE
     Route: 065
     Dates: start: 201401
  2. SHAKUYAKUKANZOTO [Concomitant]
     Active Substance: HERBALS
     Indication: SPINAL COMPRESSION FRACTURE
     Route: 065
     Dates: start: 201401

REACTIONS (2)
  - Gastric disorder [Unknown]
  - Pseudolymphoma [Unknown]
